FAERS Safety Report 13101362 (Version 3)
Quarter: 2017Q2

REPORT INFORMATION
  Report Type: Spontaneous
  Country: US (occurrence: US)
  Receive Date: 20170110
  Receipt Date: 20170502
  Transmission Date: 20170830
  Serious: Yes (Hospitalization)
  Sender: FDA-Public Use
  Company Number: US-GLAXOSMITHKLINE-US2017GSK002023

PATIENT
  Sex: Female
  Weight: 62.59 kg

DRUGS (3)
  1. LAMICTAL [Suspect]
     Active Substance: LAMOTRIGINE
     Indication: PRODUCT USED FOR UNKNOWN INDICATION
     Dosage: UNK
     Dates: start: 2007, end: 2007
  2. LAMICTAL [Suspect]
     Active Substance: LAMOTRIGINE
     Indication: BIPOLAR DISORDER
     Dosage: 200 MG, BID
     Route: 048
     Dates: end: 2005
  3. LITHIUM. [Suspect]
     Active Substance: LITHIUM
     Indication: BIPOLAR DISORDER
     Dosage: 300 MG, BID WITH AN ADDITIONAL 150 MG IN A.M. ON SUNDAY, MONDAY, WEDNESDAY AND FRIDAY
     Dates: start: 1984

REACTIONS (8)
  - Drug effect decreased [Unknown]
  - Hypercalcaemia [Unknown]
  - Condition aggravated [Unknown]
  - Depression [Unknown]
  - Nausea [Unknown]
  - Tremor [Unknown]
  - Gastric disorder [Unknown]
  - Ill-defined disorder [Unknown]

NARRATIVE: CASE EVENT DATE: 2007
